FAERS Safety Report 7920659-1 (Version None)
Quarter: 2011Q4

REPORT INFORMATION
  Report Type: 
  Country: None (occurrence: None)
  Receive Date: 20111117
  Receipt Date: 20111110
  Transmission Date: 20120403
  Serious: Yes (Other)
  Sender: FDA-Public Use
  Company Number: US-SHIRE-ALL1-2011-04441

PATIENT
  Age: 7 Year
  Sex: Male
  Weight: 24.49 kg

DRUGS (3)
  1. FOCALIN [Concomitant]
     Indication: ATTENTION DEFICIT/HYPERACTIVITY DISORDER
     Dosage: 10 MG, 1X/DAY:QD
     Route: 048
     Dates: start: 20110901
  2. INTUNIV [Suspect]
     Indication: ATTENTION DEFICIT/HYPERACTIVITY DISORDER
     Dosage: 2 MG, 1X/DAY:QD
     Route: 048
     Dates: start: 20111108, end: 20111109
  3. INTUNIV [Suspect]
     Dosage: 1 MG, 1X/DAY:QD
     Route: 048
     Dates: start: 20111001, end: 20111107

REACTIONS (2)
  - SELF-INJURIOUS IDEATION [None]
  - DEPRESSED MOOD [None]
